FAERS Safety Report 14740257 (Version 11)
Quarter: 2020Q1

REPORT INFORMATION
  Report Type: Spontaneous
  Country: US (occurrence: US)
  Receive Date: 20180410
  Receipt Date: 20200310
  Transmission Date: 20200409
  Serious: No
  Sender: FDA-Public Use
  Company Number: US-PFIZER INC-2018143289

PATIENT
  Age: 38 Year
  Sex: Female

DRUGS (9)
  1. VANCOMYCIN HCL [Suspect]
     Active Substance: VANCOMYCIN HYDROCHLORIDE
     Dosage: UNK
  2. HYDROCODONE BITARTRATE. [Suspect]
     Active Substance: HYDROCODONE BITARTRATE
     Dosage: UNK
  3. METFORMIN [Suspect]
     Active Substance: METFORMIN HYDROCHLORIDE
     Dosage: UNK
  4. CEFACLOR. [Suspect]
     Active Substance: CEFACLOR
     Dosage: UNK
  5. CEPHALEXIN [CEFALEXIN SODIUM] [Suspect]
     Active Substance: CEPHALEXIN
     Dosage: UNK
  6. AMOXICILLIN. [Suspect]
     Active Substance: AMOXICILLIN
     Dosage: UNK
  7. AMITRIPTYLLINE [Suspect]
     Active Substance: AMITRIPTYLINE
     Dosage: UNK
  8. CELECOXIB. [Suspect]
     Active Substance: CELECOXIB
     Dosage: UNK
  9. ZOLPIDEM [Suspect]
     Active Substance: ZOLPIDEM TARTRATE
     Dosage: UNK

REACTIONS (2)
  - Rash [Unknown]
  - Drug hypersensitivity [Unknown]
